FAERS Safety Report 21017217 (Version 1)
Quarter: 2022Q2

REPORT INFORMATION
  Report Type: Spontaneous
  Country: US (occurrence: US)
  Receive Date: 20220628
  Receipt Date: 20220628
  Transmission Date: 20220721
  Serious: No
  Sender: FDA-Public Use
  Company Number: US-BAYER-2022A086350

PATIENT
  Sex: Female

DRUGS (1)
  1. MENOSTAR [Suspect]
     Active Substance: ESTRADIOL
     Dosage: 14 ?G, QD
     Route: 062

REACTIONS (2)
  - Application site rash [None]
  - Product quality issue [None]
